FAERS Safety Report 15842519 (Version 2)
Quarter: 2019Q1

REPORT INFORMATION
  Report Type: Report from Study
  Country: US (occurrence: US)
  Receive Date: 20190118
  Receipt Date: 20190128
  Transmission Date: 20190417
  Serious: No
  Sender: FDA-Public Use
  Company Number: PHEH2019US002397

PATIENT
  Sex: Male

DRUGS (2)
  1. ENTRESTO [Suspect]
     Active Substance: SACUBITRIL\VALSARTAN
     Indication: CARDIAC FAILURE
     Dosage: UNK
     Route: 048
  2. ENTRESTO [Suspect]
     Active Substance: SACUBITRIL\VALSARTAN
     Dosage: 1 DF (24/26MG), UNK
     Route: 065

REACTIONS (4)
  - Joint dislocation [Unknown]
  - Blood potassium increased [Unknown]
  - Drug ineffective [Unknown]
  - Nasopharyngitis [Unknown]
